FAERS Safety Report 4665958-4 (Version None)
Quarter: 2005Q2

REPORT INFORMATION
  Report Type: 
  Country: None (occurrence: None)
  Receive Date: 20050517
  Receipt Date: 20050408
  Transmission Date: 20051028
  Serious: No
  Sender: FDA-Public Use
  Company Number: S05-USA-01836-01

PATIENT
  Age: 84 Year
  Sex: Female

DRUGS (9)
  1. NAMENDA [Suspect]
     Indication: DEMENTIA ALZHEIMER'S TYPE
     Dosage: 5 MG QD PO
     Route: 048
     Dates: start: 20050402
  2. ARICEPT [Concomitant]
  3. GLUCOPHAGE [Concomitant]
  4. FLONASE [Concomitant]
  5. NORVASC [Concomitant]
  6. LISINOPRIL [Concomitant]
  7. LASIX [Concomitant]
  8. KCL (POTASSIUM CHLORIDE) [Concomitant]
  9. CALCIUM GLUCONATE [Concomitant]

REACTIONS (2)
  - DYSPNOEA [None]
  - TREMOR [None]
